FAERS Safety Report 7770050-6 (Version None)
Quarter: 2011Q3

REPORT INFORMATION
  Report Type: 
  Country: None (occurrence: None)
  Receive Date: 20110922
  Receipt Date: 20100823
  Transmission Date: 20111222
  Serious: Yes (Other)
  Sender: FDA-Public Use
  Company Number: US-ASTRAZENECA-2010SE39579

PATIENT
  Age: 36 Year
  Sex: Female

DRUGS (3)
  1. CLONOPIN [Concomitant]
  2. SEROQUEL [Suspect]
     Indication: BIPOLAR DISORDER
     Route: 048
  3. PRESTIG [Concomitant]

REACTIONS (1)
  - CONVULSION [None]
